FAERS Safety Report 5329988-1 (Version None)
Quarter: 2007Q2

REPORT INFORMATION
  Report Type: 
  Country: None (occurrence: None)
  Receive Date: 20070521
  Receipt Date: 20070517
  Transmission Date: 20071010
  Serious: Yes (Hospitalization)
  Sender: FDA-Public Use
  Company Number: A0651774A

PATIENT
  Age: 82 Year
  Sex: Female

DRUGS (6)
  1. TYKERB [Suspect]
     Indication: BREAST CANCER
     Dosage: 5TAB PER DAY
     Route: 048
     Dates: start: 20070413, end: 20070508
  2. XELODA [Concomitant]
  3. WARFARIN SODIUM [Concomitant]
  4. DIGOXIN [Concomitant]
  5. FUROSEMIDE [Concomitant]
  6. LISINOPRIL [Concomitant]

REACTIONS (5)
  - BLOOD PRESSURE DECREASED [None]
  - DEHYDRATION [None]
  - DIARRHOEA [None]
  - NAUSEA [None]
  - VOMITING [None]
